FAERS Safety Report 24177173 (Version 2)
Quarter: 2025Q3

REPORT INFORMATION
  Report Type: Spontaneous
  Country: US (occurrence: US)
  Receive Date: 20240806
  Receipt Date: 20250730
  Transmission Date: 20251021
  Serious: No
  Sender: AMNEAL
  Company Number: US-AMNEAL-2024-AMRX-01231

PATIENT
  Age: 44 Year
  Sex: Male
  Weight: 79.365 kg

DRUGS (1)
  1. BACLOFEN [Suspect]
     Active Substance: BACLOFEN
     Indication: Product used for unknown indication
     Route: 037

REACTIONS (2)
  - Implant site erythema [Not Recovered/Not Resolved]
  - Implant site seroma [Recovered/Resolved]

NARRATIVE: CASE EVENT DATE: 20240320
